FAERS Safety Report 8921138 (Version 4)
Quarter: 2013Q1

REPORT INFORMATION
  Report Type: Spontaneous
  Country: JP (occurrence: JP)
  Receive Date: 20121121
  Receipt Date: 20130117
  Transmission Date: 20140127
  Serious: Yes (Hospitalization, Other)
  Sender: FDA-Public Use
  Company Number: JP-PFIZER INC-2012291122

PATIENT
  Age: 59 Year
  Sex: Male

DRUGS (9)
  1. LIPITOR [Suspect]
     Dosage: 10 MG, 1X/DAY
     Route: 048
     Dates: start: 20121025, end: 20121108
  2. MEROPENEM [Suspect]
     Dosage: 1.5 G, DAILY
     Route: 041
     Dates: start: 20121021, end: 20121102
  3. TAKEPRON [Suspect]
     Dosage: 30 MG, 1X/DAY
     Route: 042
     Dates: start: 20121021, end: 20121022
  4. LANSOPRAZOLE [Suspect]
     Dosage: 15 MG, DAILY
     Route: 048
     Dates: start: 20121023, end: 20121108
  5. FUNGUARD [Suspect]
     Dosage: 75 MG, UID
     Route: 041
     Dates: start: 20121021, end: 20121103
  6. CRAVIT [Suspect]
     Dosage: 500 MG, 1X/DAY
     Route: 042
     Dates: start: 20121021, end: 20121102
  7. CLARITH [Suspect]
     Dosage: 800 MG, DAILY
     Route: 048
     Dates: start: 20121031, end: 20121108
  8. RIFADIN [Suspect]
     Dosage: 300 MG, 1X/DAY
     Route: 048
     Dates: start: 20121031, end: 20121108
  9. EBUTOL [Suspect]
     Dosage: 500 MG, DAILY
     Route: 048
     Dates: start: 20121031, end: 20121108

REACTIONS (1)
  - Interstitial lung disease [Recovered/Resolved]
